FAERS Safety Report 9785553 (Version 2)
Quarter: 2014Q2

REPORT INFORMATION
  Report Type: Other
  Country: SE (occurrence: SE)
  Receive Date: 20131227
  Receipt Date: 20140429
  Transmission Date: 20141212
  Serious: Yes (Other)
  Sender: FDA-Public Use
  Company Number: SE-ASTELLAS-2013EU011332

PATIENT
  Age: 81 Year
  Sex: Female

DRUGS (5)
  1. BETMIGA [Suspect]
     Indication: INCONTINENCE
     Route: 065
     Dates: start: 20130808
  2. BETMIGA [Suspect]
     Indication: MICTURITION URGENCY
  3. BETMIGA [Suspect]
     Indication: INCONTINENCE
     Route: 065
     Dates: start: 20130715, end: 20130807
  4. BETMIGA [Suspect]
     Indication: MICTURITION URGENCY
  5. VAGIFEM [Concomitant]
     Indication: PRODUCT USED FOR UNKNOWN INDICATION
     Dosage: UNK UNK, UNKNOWN FREQ.
     Route: 065

REACTIONS (2)
  - Syncope [Recovered/Resolved]
  - Dizziness [Recovered/Resolved]
